FAERS Safety Report 20514291 (Version 1)
Quarter: 2022Q1

REPORT INFORMATION
  Report Type: Spontaneous
  Country: US (occurrence: None)
  Receive Date: 20220224
  Receipt Date: 20220224
  Transmission Date: 20220423
  Serious: Yes (Other)
  Sender: FDA-Public Use
  Company Number: None

PATIENT
  Age: 64 Year
  Sex: Female
  Weight: 67.13 kg

DRUGS (14)
  1. AJOVY [Suspect]
     Active Substance: FREMANEZUMAB-VFRM
     Indication: Migraine
     Dosage: OTHER FREQUENCY : EVERY 28 DAYS;?
     Dates: start: 20211021, end: 20211217
  2. UBRELVY [Concomitant]
     Active Substance: UBROGEPANT
  3. NURTEC ODT [Concomitant]
     Active Substance: RIMEGEPANT SULFATE
  4. SINGULAIR [Concomitant]
     Active Substance: MONTELUKAST SODIUM
  5. Doxycicline [Concomitant]
  6. Celebrx [Concomitant]
  7. Colbetasol proprionate [Concomitant]
  8. MAGNESIUM [Concomitant]
     Active Substance: MAGNESIUM
  9. VitD in Omega 3 [Concomitant]
  10. CHROMIUM [Concomitant]
     Active Substance: CHROMIC CHLORIDE\CHROMIUM
  11. VITAMINS [Concomitant]
     Active Substance: VITAMINS
  12. Allergy SLT gtts [Concomitant]
  13. Enbrace HR/MF [Concomitant]
  14. Ubuquinol [Concomitant]

REACTIONS (5)
  - Injection site pain [None]
  - Injection site urticaria [None]
  - Injection site erythema [None]
  - Injection site pruritus [None]
  - Blood pressure increased [None]

NARRATIVE: CASE EVENT DATE: 20211217
